FAERS Safety Report 8273407-2 (Version None)
Quarter: 2012Q2

REPORT INFORMATION
  Report Type: 
  Country: None (occurrence: None)
  Receive Date: 20120411
  Receipt Date: 20120410
  Transmission Date: 20120825
  Serious: Yes (Other)
  Sender: FDA-Public Use
  Company Number: PHHY2012NL003554

PATIENT
  Sex: Male

DRUGS (14)
  1. ZOMETA [Suspect]
     Dosage: 4 MG/100 ML IN 20 MINUTES 1X PER 28 DAYS
     Route: 042
     Dates: start: 20120116
  2. CALCIUM CARBONATE [Concomitant]
  3. ZOMETA [Suspect]
     Dosage: 4 MG/100 ML IN 20 MINUTES 1X PER 28 DAYS
     Route: 042
     Dates: start: 20120213
  4. AVODART [Concomitant]
  5. MOLAXEL [Concomitant]
  6. ZOMETA [Suspect]
     Dosage: 4 MG/100 ML IN 20 MINUTES 1X PER 28 DAYS
     Route: 042
     Dates: start: 20120410
  7. DILANORM [Concomitant]
  8. ZOMETA [Suspect]
     Indication: METASTASES TO PROSTATE
     Dosage: 4 MG/100 ML IN 20 MINUTES 1X PER 28 DAYS
     Route: 042
  9. ZOMETA [Suspect]
     Dosage: 4 MG/100 ML IN 20 MINUTES 1X PER 28 DAYS
     Route: 042
     Dates: start: 20100726
  10. PREDNISONE TAB [Concomitant]
  11. ABIRATERON ACETATE [Concomitant]
  12. ZOMETA [Suspect]
     Dosage: 4 MG/100 ML IN 20 MINUTES 1X PER 28 DAYS
     Route: 042
     Dates: start: 20111219
  13. ZOMETA [Suspect]
     Dosage: 4 MG/100 ML IN 20 MINUTES 1X PER 28 DAYS
     Route: 042
     Dates: start: 20120312
  14. VITAMIN D [Concomitant]

REACTIONS (7)
  - ALTERED STATE OF CONSCIOUSNESS [None]
  - BONE PAIN [None]
  - GENERAL PHYSICAL HEALTH DETERIORATION [None]
  - LYMPHOMA [None]
  - NEOPLASM MALIGNANT [None]
  - DRUG RESISTANCE [None]
  - FATIGUE [None]
